FAERS Safety Report 12085237 (Version 2)
Quarter: 2017Q1

REPORT INFORMATION
  Report Type: Spontaneous
  Country: US (occurrence: US)
  Receive Date: 20160217
  Receipt Date: 20170301
  Transmission Date: 20170428
  Serious: No
  Sender: FDA-Public Use
  Company Number: US-LUNDBECK-DKLU2009042

PATIENT
  Sex: Female

DRUGS (2)
  1. NORTHERA [Suspect]
     Active Substance: DROXIDOPA
     Indication: PRODUCT USED FOR UNKNOWN INDICATION
     Route: 065
  2. NORTHERA [Suspect]
     Active Substance: DROXIDOPA
     Route: 065

REACTIONS (9)
  - Constipation [Unknown]
  - Drug ineffective [Unknown]
  - Pollakiuria [Unknown]
  - Dystonia [Unknown]
  - Drooling [Unknown]
  - Blood pressure decreased [Unknown]
  - Orthostatic hypotension [Unknown]
  - Salivary hypersecretion [Unknown]
  - Dizziness [Unknown]
